FAERS Safety Report 4379908-1 (Version None)
Quarter: 2004Q2

REPORT INFORMATION
  Report Type: 
  Country: None (occurrence: None)
  Receive Date: 20040614
  Receipt Date: 20040527
  Transmission Date: 20050107
  Serious: Yes (Death)
  Sender: FDA-Public Use
  Company Number: 8006395

PATIENT
  Age: 21 Year
  Sex: Female

DRUGS (3)
  1. KEPPRA [Suspect]
     Indication: EPILEPSY
     Dosage: 3 G /D PO
     Route: 048
     Dates: start: 20030301, end: 20040425
  2. TOPAMAX [Suspect]
     Indication: EPILEPSY
     Dosage: 400 MG 1/D PO
     Route: 048
     Dates: start: 20030101, end: 20040525
  3. DEPAKENE [Suspect]
     Indication: EPILEPSY
     Dosage: 800 MG /D PO
     Route: 048
     Dates: start: 20030201, end: 20040525

REACTIONS (1)
  - SUDDEN DEATH [None]
